FAERS Safety Report 14434973 (Version 2)
Quarter: 2018Q1

REPORT INFORMATION
  Report Type: Spontaneous
  Country: BR (occurrence: BR)
  Receive Date: 20180125
  Receipt Date: 20180208
  Transmission Date: 20180509
  Serious: Yes (Other)
  Sender: FDA-Public Use
  Company Number: PHHY2018BR009490

PATIENT
  Sex: Female
  Weight: 73.5 kg

DRUGS (2)
  1. SANDIMMUN NEORAL [Suspect]
     Active Substance: CYCLOSPORINE
     Indication: PSORIATIC ARTHROPATHY
  2. SANDIMMUN NEORAL [Suspect]
     Active Substance: CYCLOSPORINE
     Indication: PSORIASIS
     Dosage: 50 MG 2 TABLETS A DAY
     Route: 048
     Dates: start: 2007, end: 2009

REACTIONS (2)
  - Cardiovascular disorder [Recovered/Resolved]
  - Psoriatic arthropathy [Recovered/Resolved]
